FAERS Safety Report 7710398-4 (Version None)
Quarter: 2011Q3

REPORT INFORMATION
  Report Type: 
  Country: None (occurrence: None)
  Receive Date: 20110825
  Receipt Date: 20110810
  Transmission Date: 20111222
  Serious: Yes (Hospitalization, Other)
  Sender: FDA-Public Use
  Company Number: US-ELI_LILLY_AND_COMPANY-US201003005833

PATIENT
  Sex: Female

DRUGS (10)
  1. MULTI-VITAMIN [Concomitant]
  2. ATENOLOL [Concomitant]
     Dosage: 25 MG, QD
  3. FORTEO [Suspect]
     Dosage: 20 UG, DAILY (1/D)
     Route: 065
  4. ASPIRIN [Concomitant]
  5. FORTEO [Suspect]
     Dosage: 20 UG, QD
     Route: 065
  6. DIOVAN [Concomitant]
     Indication: BLOOD PRESSURE
     Dosage: 160 DF, QD
  7. FORTEO [Suspect]
     Indication: OSTEOPOROSIS
     Dosage: 20 UG, DAILY (1/D)
     Route: 065
     Dates: start: 20091101
  8. FORTEO [Suspect]
     Dosage: 20 UG, QD
     Route: 065
  9. VITAMIN D [Concomitant]
  10. FLEX-A-MIN [Concomitant]
     Dosage: 1 DF, QD

REACTIONS (26)
  - INFECTION [None]
  - DIZZINESS [None]
  - THROMBOCYTOSIS [None]
  - LEUKOCYTOSIS [None]
  - TRANSFUSION [None]
  - PNEUMONIA [None]
  - MALAISE [None]
  - HEADACHE [None]
  - HEART RATE DECREASED [None]
  - FATIGUE [None]
  - BONE MARROW DISORDER [None]
  - ASTHENIA [None]
  - ABDOMINAL DISCOMFORT [None]
  - DECREASED APPETITE [None]
  - MUSCLE SPASMS [None]
  - BLOOD PRESSURE DECREASED [None]
  - WEIGHT DECREASED [None]
  - BLOOD POTASSIUM DECREASED [None]
  - NASOPHARYNGITIS [None]
  - NODULE [None]
  - DEVICE MISUSE [None]
  - DYSPNOEA [None]
  - RHINORRHOEA [None]
  - COUGH [None]
  - DEHYDRATION [None]
  - ANAEMIA [None]
